FAERS Safety Report 18666247 (Version 2)
Quarter: 2020Q4

REPORT INFORMATION
  Report Type: Report from Study
  Country: FR (occurrence: FR)
  Receive Date: 20201226
  Receipt Date: 20201230
  Transmission Date: 20210114
  Serious: Yes (Hospitalization)
  Sender: FDA-Public Use
  Company Number: NVSC2020FR324858

PATIENT
  Age: 10 Month
  Sex: Male
  Weight: 6.56 kg

DRUGS (2)
  1. ZOLGENSMA [Suspect]
     Active Substance: ONASEMNOGENE ABEPARVOVEC-XIOI
     Indication: SPINAL MUSCULAR ATROPHY
     Dosage: 5.5 ML, ONCE/SINGLE (7.2 X 1014 GENOME VECTOR COPIES)
     Route: 042
     Dates: start: 20201119, end: 20201119
  2. ZOLGENSMA [Suspect]
     Active Substance: ONASEMNOGENE ABEPARVOVEC-XIOI
     Dosage: 8.3 ML, ONCE/SINGLE (7.2 X 1014 GENOME VECTOR COPIES)
     Route: 042
     Dates: start: 20201119, end: 20201119

REACTIONS (6)
  - Pyrexia [Recovered/Resolved]
  - Fatigue [Unknown]
  - Obstructive airways disorder [Recovering/Resolving]
  - Feeding disorder [Unknown]
  - Aspartate aminotransferase abnormal [Recovered/Resolved]
  - Cough [Recovering/Resolving]

NARRATIVE: CASE EVENT DATE: 20201121
